FAERS Safety Report 9449803 (Version 1)
Quarter: 2013Q3

REPORT INFORMATION
  Report Type: Report from Study
  Country: CA (occurrence: CA)
  Receive Date: 20130809
  Receipt Date: 20130809
  Transmission Date: 20140515
  Serious: Yes (Hospitalization, Other)
  Sender: FDA-Public Use
  Company Number: CA-JNJFOC-20130802125

PATIENT
  Age: 68 Year
  Sex: Male
  Weight: 66 kg

DRUGS (12)
  1. REMICADE [Suspect]
     Indication: ANKYLOSING SPONDYLITIS
     Route: 042
     Dates: start: 20080828
  2. ASA [Concomitant]
     Dosage: /JOU
     Route: 065
  3. NOVOMETHACIN [Concomitant]
     Route: 065
  4. SYNTHROID [Concomitant]
     Route: 065
  5. TERAZOSIN [Concomitant]
     Route: 065
  6. METHOTREXATE [Concomitant]
     Route: 065
  7. SALAZOPYRINE [Concomitant]
     Route: 065
  8. TAMSULOSIN [Concomitant]
     Route: 065
  9. RISEDRONATE [Concomitant]
     Route: 065
  10. ATENOLOL [Concomitant]
     Route: 065
  11. TELMISARTAN [Concomitant]
     Route: 065
  12. SENNOSIDE (UNSPECIFIED) [Concomitant]
     Route: 065

REACTIONS (3)
  - Fall [Unknown]
  - Spinal operation [Unknown]
  - Intestinal perforation [Unknown]
